FAERS Safety Report 20787027 (Version 3)
Quarter: 2022Q4

REPORT INFORMATION
  Report Type: Spontaneous
  Country: DE (occurrence: DE)
  Receive Date: 20220505
  Receipt Date: 20221212
  Transmission Date: 20230113
  Serious: Yes (Other)
  Sender: FDA-Public Use
  Company Number: DE-SUN PHARMACEUTICAL INDUSTRIES LTD-2022R1-334723

PATIENT
  Age: 10 Year
  Sex: Female

DRUGS (4)
  1. HYDROXYCHLOROQUINE [Suspect]
     Active Substance: HYDROXYCHLOROQUINE
     Indication: Malignant atrophic papulosis
     Dosage: 4 MILLIGRAM/KILOGRAM, QD [100 MG/DAY]
     Route: 048
  2. BARICITINIB [Suspect]
     Active Substance: BARICITINIB
     Indication: Malignant atrophic papulosis
     Dosage: 0.025 MILLIGRAM/KILOGRAM, QD [0?5 MG/DAY]
     Route: 048
  3. BARICITINIB [Suspect]
     Active Substance: BARICITINIB
     Dosage: 0.5 MILLIGRAM, QD, UP TO 0?4 MG/KG PER DAY (8 MG/DAY IN FOUR SINGLE DOSES)
  4. CYCLOPHOSPHAMIDE [Suspect]
     Active Substance: CYCLOPHOSPHAMIDE
     Indication: Malignant atrophic papulosis
     Dosage: 25 MILLIGRAM/SQ. METER, QD
     Route: 065

REACTIONS (1)
  - Disease progression [Unknown]
